FAERS Safety Report 21586317 (Version 2)
Quarter: 2022Q4

REPORT INFORMATION
  Report Type: Spontaneous
  Country: FR (occurrence: FR)
  Receive Date: 20221112
  Receipt Date: 20221125
  Transmission Date: 20230113
  Serious: Yes (Hospitalization, Other)
  Sender: FDA-Public Use
  Company Number: FR-OTSUKA-2016_010509

PATIENT
  Age: 31 Year
  Sex: Male
  Weight: 52 kg

DRUGS (35)
  1. AMOXICILLIN\CLAVULANIC ACID [Suspect]
     Active Substance: AMOXICILLIN\CLAVULANIC ACID
     Indication: Tuberculosis
     Dosage: 1500 MILLIGRAM, ONCE A DAY
     Route: 065
  2. LINEZOLID [Suspect]
     Active Substance: LINEZOLID
     Indication: Pulmonary tuberculosis
     Dosage: UNK
     Route: 065
     Dates: end: 201509
  3. AMIKACIN SULFATE [Suspect]
     Active Substance: AMIKACIN SULFATE
     Indication: Tuberculosis
     Dosage: UNK
     Route: 042
     Dates: start: 20150828, end: 20150828
  4. AMIKACIN SULFATE [Suspect]
     Active Substance: AMIKACIN SULFATE
     Dosage: 500 MILLIGRAM, ONCE A DAY
     Route: 065
     Dates: start: 20150828, end: 20150828
  5. AMIKACIN [Suspect]
     Active Substance: AMIKACIN
     Indication: Tuberculosis
     Dosage: 400 MILLIGRAM, EVERY OTHER DAY
     Route: 065
  6. BEDAQUILINE [Suspect]
     Active Substance: BEDAQUILINE
     Indication: Tuberculosis
     Dosage: 600 MILLIGRAM, EVERY WEEK(200 MG, 3 TIMES BY WEEK)
     Route: 065
     Dates: start: 20150828, end: 20160420
  7. BEDAQUILINE [Suspect]
     Active Substance: BEDAQUILINE
     Indication: Pulmonary tuberculosis
     Dosage: 200 MG, 3 TIMES BY WEEK
     Route: 048
     Dates: start: 20150828, end: 20160420
  8. BEDAQUILINE [Suspect]
     Active Substance: BEDAQUILINE
     Indication: Tuberculosis
  9. CLOFAZIMINE [Suspect]
     Active Substance: CLOFAZIMINE
     Indication: Pulmonary tuberculosis
     Dosage: UNK
     Route: 065
  10. CYCLOSERINE [Suspect]
     Active Substance: CYCLOSERINE
     Indication: Tuberculosis
     Dosage: 250 MILLIGRAM, ONCE A DAY
     Route: 048
     Dates: start: 20150828
  11. CYCLOSERINE [Suspect]
     Active Substance: CYCLOSERINE
     Indication: Tuberculosis
  12. DELAMANID [Interacting]
     Active Substance: DELAMANID
     Indication: Tuberculosis
     Dosage: 200 MILLIGRAM, ONCE A DAY(UNSPECIFIED, 4 TABLETS)
     Route: 065
     Dates: start: 20151002, end: 20160420
  13. DELAMANID [Suspect]
     Active Substance: DELAMANID
     Indication: Tuberculosis
     Dosage: 200 MILLIGRAM, ONCE A DAY
     Route: 048
     Dates: start: 20151002, end: 20160420
  14. DELAMANID [Suspect]
     Active Substance: DELAMANID
     Indication: Pulmonary tuberculosis
     Dosage: UNK
     Route: 065
  15. AMINOSALICYLIC ACID [Suspect]
     Active Substance: AMINOSALICYLIC ACID
     Indication: Tuberculosis
     Dosage: 8 GRAM, ONCE A DAY
     Route: 048
     Dates: start: 20150828
  16. MOXIFLOXACIN HYDROCHLORIDE [Suspect]
     Active Substance: MOXIFLOXACIN HYDROCHLORIDE
     Indication: Pulmonary tuberculosis
     Dosage: UNK
     Route: 065
     Dates: end: 201509
  17. IMIPENEM [Suspect]
     Active Substance: IMIPENEM
     Indication: Tuberculosis
     Dosage: 3 GRAM, ONCE A DAY
     Route: 065
  18. LAMPRENE [Interacting]
     Active Substance: CLOFAZIMINE
     Indication: Tuberculosis
     Dosage: 100 MILLIGRAM, ONCE A DAY
     Route: 065
     Dates: start: 20150912, end: 20160420
  19. LAMPRENE [Interacting]
     Active Substance: CLOFAZIMINE
     Dosage: 100 MILLIGRAM, ONCE A DAY
     Route: 048
     Dates: start: 20150912, end: 20160420
  20. MIANSERIN HYDROCHLORIDE [Suspect]
     Active Substance: MIANSERIN HYDROCHLORIDE
     Indication: Impulsive behaviour
     Dosage: 10 MILLIGRAM, ONCE A DAY
     Route: 048
     Dates: start: 20160408
  21. MIANSERIN HYDROCHLORIDE [Suspect]
     Active Substance: MIANSERIN HYDROCHLORIDE
     Indication: Impulsive behaviour
  22. PARA-AMINOSALICYLIC ACID [Suspect]
     Active Substance: AMINOSALICYLIC ACID
     Indication: Tuberculosis
     Dosage: 8 GRAM( (50 MG TAB))
     Route: 065
     Dates: start: 20150828
  23. CILASTATIN SODIUM\IMIPENEM [Suspect]
     Active Substance: CILASTATIN SODIUM\IMIPENEM
     Indication: Pulmonary tuberculosis
     Dosage: 3 GRAM, ONCE A DAY
     Route: 065
     Dates: start: 20150922
  24. DAFALGAN [Concomitant]
     Active Substance: ACETAMINOPHEN
     Indication: Product used for unknown indication
     Dosage: ONLY IF NEEDED
     Route: 065
  25. POTASSIUM CHLORIDE [Concomitant]
     Active Substance: POTASSIUM CHLORIDE
     Indication: Product used for unknown indication
     Dosage: 1200 MILLIGRAM, ONCE A DAY
     Route: 065
  26. ESOMEPRAZOLE [Concomitant]
     Active Substance: ESOMEPRAZOLE
     Indication: Product used for unknown indication
     Dosage: UNK
     Route: 065
  27. PRAZEPAM [Concomitant]
     Active Substance: PRAZEPAM
     Indication: Anxiety
     Dosage: 10 DOSAGE FORM(10 DROPS PER DAY,  ONLY IF NEEDED)
     Route: 065
     Dates: start: 20151006
  28. MAGNESIUM [Concomitant]
     Active Substance: MAGNESIUM
     Indication: Product used for unknown indication
     Dosage: DOSAGE FORM: UNSPECIFIED
     Route: 065
  29. NIACINAMIDE [Concomitant]
     Active Substance: NIACINAMIDE
     Indication: Product used for unknown indication
     Dosage: 1 DOSAGE FORM
     Route: 065
  30. PRIMPERAN [Concomitant]
     Active Substance: METOCLOPRAMIDE HYDROCHLORIDE
     Indication: Product used for unknown indication
     Dosage: 20 MILLIGRAM, ONCE A DAY(IF NEEDED)
     Route: 065
  31. PHLOROGLUCINOL [Concomitant]
     Active Substance: PHLOROGLUCINOL
     Indication: Product used for unknown indication
     Dosage: 240 MILLIGRAM, ONCE A DAY( IF NEEDED)
     Route: 065
  32. FERROUS SULFATE [Concomitant]
     Active Substance: FERROUS SULFATE
     Indication: Product used for unknown indication
     Dosage: UNK
     Route: 065
  33. RACECADOTRIL [Concomitant]
     Active Substance: RACECADOTRIL
     Indication: Product used for unknown indication
     Dosage: 1 DOSAGE FORM
     Route: 065
  34. CHOLECALCIFEROL [Concomitant]
     Active Substance: CHOLECALCIFEROL
     Indication: Tuberculosis
     Dosage: (100 000 IU/14 DAYS)
     Route: 065
  35. PYRIDOXINE HYDROCHLORIDE\THIAMINE HYDROCHLORIDE [Concomitant]
     Active Substance: PYRIDOXINE HYDROCHLORIDE\THIAMINE HYDROCHLORIDE
     Indication: Product used for unknown indication
     Dosage: 2 DOSAGE FORM, ONCE A DAY
     Route: 065

REACTIONS (5)
  - Benign soft tissue neoplasm [Recovered/Resolved]
  - Long QT syndrome [Unknown]
  - Fibroma [Recovered/Resolved]
  - Electrocardiogram QT prolonged [Unknown]
  - Intracardiac mass [Recovered/Resolved]

NARRATIVE: CASE EVENT DATE: 20160226
